FAERS Safety Report 7387946-X (Version None)
Quarter: 2011Q2

REPORT INFORMATION
  Report Type: 
  Country: None (occurrence: None)
  Receive Date: 20110401
  Receipt Date: 20110317
  Transmission Date: 20111010
  Serious: Yes (Other)
  Sender: FDA-Public Use
  Company Number: US-BIOGENIDEC-2011BI003669

PATIENT
  Age: 43 Year
  Sex: Female

DRUGS (1)
  1. AVONEX [Suspect]
     Indication: MULTIPLE SCLEROSIS
     Route: 030
     Dates: start: 20110105, end: 20110307

REACTIONS (6)
  - EMOTIONAL DISTRESS [None]
  - ADVERSE REACTION [None]
  - APHAGIA [None]
  - DEPRESSED MOOD [None]
  - AGGRESSION [None]
  - INSOMNIA [None]
